FAERS Safety Report 11260903 (Version 1)
Quarter: 2015Q3

REPORT INFORMATION
  Report Type: Spontaneous
  Country: FR (occurrence: FR)
  Receive Date: 20150710
  Receipt Date: 20150710
  Transmission Date: 20151125
  Serious: Yes (Hospitalization)
  Sender: FDA-Public Use
  Company Number: FR-IPSEN BIOPHARMACEUTICALS, INC.-2015-6041

PATIENT
  Age: 7 Year
  Sex: Male
  Weight: 23.1 kg

DRUGS (4)
  1. DEPAKINE [Concomitant]
     Active Substance: VALPROATE SODIUM
     Indication: PRODUCT USED FOR UNKNOWN INDICATION
     Route: 048
  2. MICROPAKINE [Concomitant]
     Active Substance: VALPROIC ACID
     Indication: PRODUCT USED FOR UNKNOWN INDICATION
     Route: 048
  3. DYSPORT [Suspect]
     Active Substance: ABOBOTULINUMTOXINA
     Indication: SALIVARY HYPERSECRETION
     Dosage: 300 UNITS
     Route: 002
     Dates: start: 20120903, end: 20120903
  4. DYSPORT [Suspect]
     Active Substance: ABOBOTULINUMTOXINA
     Indication: PRODUCT USE ISSUE
     Dosage: 420 UNITS
     Route: 002
     Dates: start: 20121029, end: 20121029

REACTIONS (5)
  - Vocal cord paresis [Unknown]
  - Respiratory distress [Recovered/Resolved]
  - Bronchial obstruction [Recovered/Resolved]
  - Inappropriate schedule of drug administration [Unknown]
  - Dysphagia [Unknown]

NARRATIVE: CASE EVENT DATE: 2012
